FAERS Safety Report 26060019 (Version 1)
Quarter: 2025Q4

REPORT INFORMATION
  Report Type: Spontaneous
  Country: US (occurrence: US)
  Receive Date: 20251118
  Receipt Date: 20251118
  Transmission Date: 20260118
  Serious: No
  Sender: NANTKWEST
  Company Number: US-NantWorks-2025-US-NANT-00071

PATIENT
  Age: 75 Year
  Sex: Male
  Weight: 83.91 kg

DRUGS (2)
  1. ANKTIVA [Suspect]
     Active Substance: NOGAPENDEKIN ALFA INBAKICEPT-PMLN
     Indication: Bladder cancer
     Dosage: THE FIRST AND ONLY DOSE PRIOR TO EVENTS ONSET (400 MCG)
     Route: 043
     Dates: start: 20250917
  2. BCG [Concomitant]
     Indication: Bladder cancer
     Dosage: THE FIRST AND ONLY DOSE PRIOR TO EVENT ONSET (50 MG)
     Route: 043
     Dates: start: 20250917

REACTIONS (2)
  - Neurological symptom [Recovered/Resolved with Sequelae]
  - Hallucination [Recovered/Resolved with Sequelae]

NARRATIVE: CASE EVENT DATE: 20250919
